FAERS Safety Report 7926645-X (Version None)
Quarter: 2011Q4

REPORT INFORMATION
  Report Type: 
  Country: None (occurrence: None)
  Receive Date: 20111118
  Receipt Date: 20111114
  Transmission Date: 20120403
  Serious: No
  Sender: FDA-Public Use
  Company Number: US-BIOGENIDEC-2011BI043601

PATIENT
  Age: 55 Year
  Sex: Female

DRUGS (3)
  1. AVONEX [Suspect]
     Indication: MULTIPLE SCLEROSIS
     Route: 030
     Dates: start: 20000101, end: 20090816
  2. AVONEX [Suspect]
     Route: 030
     Dates: start: 19970516, end: 20000101
  3. AVONEX [Suspect]
     Route: 030
     Dates: start: 20091209, end: 20110531

REACTIONS (3)
  - MONOPLEGIA [None]
  - INFLUENZA LIKE ILLNESS [None]
  - DIPLEGIA [None]
